FAERS Safety Report 19502796 (Version 1)
Quarter: 2021Q3

REPORT INFORMATION
  Report Type: Spontaneous
  Country: CO (occurrence: CO)
  Receive Date: 20210707
  Receipt Date: 20210707
  Transmission Date: 20211014
  Serious: Yes (Death)
  Sender: FDA-Public Use
  Company Number: CO-PFIZER INC-2021690875

PATIENT
  Age: 54 Year
  Sex: Male

DRUGS (2)
  1. VANCOMYCIN HCL [Suspect]
     Active Substance: VANCOMYCIN HYDROCHLORIDE
     Indication: ANTIBIOTIC THERAPY
     Dosage: UNK
  2. PENICILLIN [PENICILLIN NOS] [Concomitant]
     Active Substance: PENICILLIN
     Indication: ANTIBIOTIC THERAPY
     Dosage: UNK

REACTIONS (1)
  - Drug ineffective [Fatal]
